FAERS Safety Report 24789564 (Version 1)
Quarter: 2024Q4

REPORT INFORMATION
  Report Type: Spontaneous
  Country: US (occurrence: US)
  Receive Date: 20241230
  Receipt Date: 20241230
  Transmission Date: 20250114
  Serious: Yes (Other)
  Sender: INCYTE
  Company Number: US-002147023-NVSC2024US243398

PATIENT

DRUGS (3)
  1. JAKAFI [Suspect]
     Active Substance: RUXOLITINIB
     Indication: T-cell prolymphocytic leukaemia
     Dosage: 5 MG, BID
     Route: 065
  2. TOFACITINIB [Suspect]
     Active Substance: TOFACITINIB
     Indication: T-cell prolymphocytic leukaemia
     Dosage: 5 MG, BID
     Route: 065
  3. TOFACITINIB [Suspect]
     Active Substance: TOFACITINIB
     Dosage: 10 MG, BID
     Route: 065

REACTIONS (3)
  - Haemoglobin decreased [Unknown]
  - Drug effective for unapproved indication [Unknown]
  - Platelet count decreased [Unknown]
